FAERS Safety Report 23870260 (Version 1)
Quarter: 2024Q2

REPORT INFORMATION
  Report Type: Spontaneous
  Country: CN (occurrence: None)
  Receive Date: 20240517
  Receipt Date: 20240517
  Transmission Date: 20240716
  Serious: Yes (Other)
  Sender: FDA-Public Use
  Company Number: 2024A092424

PATIENT
  Sex: Male
  Weight: 85 kg

DRUGS (1)
  1. IMFINZI [Suspect]
     Active Substance: DURVALUMAB
     Indication: Lung neoplasm malignant
     Dosage: THREE VIALS EVERY 21 DAYS
     Route: 042

REACTIONS (5)
  - Adverse drug reaction [Unknown]
  - Coronary artery disease [Recovered/Resolved]
  - Myocarditis [Recovered/Resolved]
  - Transaminases increased [Recovering/Resolving]
  - Hepatic function abnormal [Recovering/Resolving]
